FAERS Safety Report 5979385-0 (Version None)
Quarter: 2008Q4

REPORT INFORMATION
  Report Type: 
  Country: None (occurrence: None)
  Receive Date: 20081204
  Receipt Date: 20081128
  Transmission Date: 20090506
  Serious: Yes (Hospitalization)
  Sender: FDA-Public Use
  Company Number: PHHO2008SE14149

PATIENT
  Sex: Female

DRUGS (5)
  1. NEORAL [Suspect]
     Indication: RENAL TRANSPLANT
     Dosage: 100 MG, BID
     Route: 048
     Dates: start: 20080806
  2. MYFORTIC [Suspect]
     Indication: RENAL TRANSPLANT
     Dosage: 320 MG, BID
     Route: 048
     Dates: start: 20080806, end: 20080817
  3. MYFORTIC [Suspect]
     Dosage: 360 MG X 1
     Route: 048
  4. NO TREATMENT RECEIVED NOMED [Suspect]
     Indication: RENAL TRANSPLANT
  5. VALCYTE [Concomitant]

REACTIONS (1)
  - FEBRILE NEUTROPENIA [None]
